FAERS Safety Report 5626474-6 (Version None)
Quarter: 2008Q1

REPORT INFORMATION
  Report Type: 
  Country: None (occurrence: None)
  Receive Date: 20080211
  Receipt Date: 20080130
  Transmission Date: 20080703
  Serious: Yes (Death)
  Sender: FDA-Public Use
  Company Number: 2008-00272

PATIENT
  Age: 75 Year
  Sex: Male

DRUGS (9)
  1. VELCADE [Suspect]
     Indication: MULTIPLE MYELOMA
     Dosage: 1.60 MG, INTRAVENOUS
     Route: 042
     Dates: start: 20080121, end: 20080121
  2. LASIX [Concomitant]
  3. KYTRILL (GRANISETRON) [Concomitant]
  4. NEOPHAGEN (GLYCYRRHIZINATE POTASSIUM) [Concomitant]
  5. SOLITA-T NO. 4 [Concomitant]
  6. FAMOTIDINE [Concomitant]
  7. BAKTAR (SULFAMETHOXAZOLE, TRIMETHOPRIM) [Concomitant]
  8. ALLOPURINOL [Concomitant]
  9. DECADRON [Concomitant]

REACTIONS (5)
  - DYSPNOEA [None]
  - HEPATIC FUNCTION ABNORMAL [None]
  - INTERSTITIAL LUNG DISEASE [None]
  - PLATELET COUNT DECREASED [None]
  - PNEUMONITIS [None]
